FAERS Safety Report 9192918 (Version 1)
Quarter: 2013Q1

REPORT INFORMATION
  Report Type: Spontaneous
  Country: TH (occurrence: US)
  Receive Date: 20130327
  Receipt Date: 20130327
  Transmission Date: 20140127
  Serious: Yes (Other)
  Sender: FDA-Public Use
  Company Number: US-BRISTOL-MYERS SQUIBB COMPANY-18697433

PATIENT
  Sex: 0

DRUGS (1)
  1. REYATAZ [Suspect]

REACTIONS (1)
  - Renal failure acute [Unknown]
